FAERS Safety Report 9494170 (Version 1)
Quarter: 2013Q3

REPORT INFORMATION
  Report Type: Report from Study
  Country: US (occurrence: US)
  Receive Date: 20130903
  Receipt Date: 20130903
  Transmission Date: 20140515
  Serious: Yes (Other)
  Sender: FDA-Public Use
  Company Number: PHEH2013US018329

PATIENT
  Sex: Male

DRUGS (3)
  1. GLEEVEC [Suspect]
     Dosage: UNK UKN, UNK
  2. GLEEVEC [Suspect]
     Dosage: UNK UKN, UNK
  3. GLEEVEC [Suspect]
     Dosage: UNK UKN, UNK

REACTIONS (6)
  - Cerebrovascular accident [Unknown]
  - Memory impairment [Unknown]
  - Speech disorder [Unknown]
  - Neoplasm progression [Unknown]
  - Neoplasm recurrence [Unknown]
  - Oedema [Unknown]
